FAERS Safety Report 24654684 (Version 1)
Quarter: 2024Q4

REPORT INFORMATION
  Report Type: Spontaneous
  Country: US (occurrence: US)
  Receive Date: 20241122
  Receipt Date: 20241122
  Transmission Date: 20250114
  Serious: Yes (Other)
  Sender: NOVO NORDISK
  Company Number: US-NOVOPROD-1099106

PATIENT

DRUGS (5)
  1. FIASP [Suspect]
     Active Substance: INSULIN ASPART
     Dosage: 30 UNITS OVER A PERIOD OF ONE AND HALF HOUR(WHEN BLOOD SUGAR WAS GOING TOO HIGH)EVENING
     Route: 058
  2. FIASP [Suspect]
     Active Substance: INSULIN ASPART
     Dosage: 80 IU(AT TIME OF BLOOD SUGAR OF 880 MG/DL)
  3. FIASP [Suspect]
     Active Substance: INSULIN ASPART
     Dosage: 30 UNITS OVER A PERIOD OF ONE AND HALF HOUR(WHEN BLOOD SUGAR WAS GOING TOO HIGH)MORNING
     Route: 058
  4. FIASP [Suspect]
     Active Substance: INSULIN ASPART
     Indication: Diabetes mellitus
     Dosage: 10 IU(NORMAL)
     Route: 058
  5. FIASP [Suspect]
     Active Substance: INSULIN ASPART
     Dosage: 15 IU(ONCE A WEEK)

REACTIONS (3)
  - Blood glucose increased [Recovered/Resolved]
  - Drug ineffective [Unknown]
  - Blood glucose decreased [Unknown]
